FAERS Safety Report 4736926-9 (Version None)
Quarter: 2005Q3

REPORT INFORMATION
  Report Type: 
  Country: None (occurrence: None)
  Receive Date: 20050808
  Receipt Date: 20050728
  Transmission Date: 20060218
  Serious: Yes (Hospitalization)
  Sender: FDA-Public Use
  Company Number: 200516041US

PATIENT
  Sex: Female
  Weight: 50 kg

DRUGS (8)
  1. LANTUS [Suspect]
     Indication: DIABETES MELLITUS NON-INSULIN-DEPENDENT
     Dosage: DOSE: 9 OR 10 ; DOSE UNIT: UNITS
     Dates: start: 20040101
  2. OPTICLIK (INSULIN INJECTION PEN) [Suspect]
  3. PLAVIX [Concomitant]
     Indication: MYOCARDIAL INFARCTION
  4. GLYBURIDE [Concomitant]
  5. ANTIHYPERTENSIVES [Concomitant]
     Indication: HYPERTENSION
  6. ANTITHROMBOTIC AGENTS [Concomitant]
     Indication: ANTICOAGULANT THERAPY
  7. DRUG USED IN DIABETES [Concomitant]
     Indication: DIABETES MELLITUS
  8. PILL TO KEEP FLUID AWAY FROM MY HEART [Concomitant]

REACTIONS (6)
  - BLOOD GLUCOSE INCREASED [None]
  - CARDIAC FAILURE CONGESTIVE [None]
  - DYSPNOEA [None]
  - MALAISE [None]
  - PERICARDIAL EFFUSION [None]
  - VOMITING [None]
